FAERS Safety Report 6478810-9 (Version None)
Quarter: 2009Q4

REPORT INFORMATION
  Report Type: 
  Country: None (occurrence: None)
  Receive Date: 20091207
  Receipt Date: 20090204
  Transmission Date: 20100525
  Serious: No
  Sender: FDA-Public Use
  Company Number: US-AMGEN-KDL332168

PATIENT
  Sex: Female

DRUGS (3)
  1. ENBREL [Suspect]
     Indication: RHEUMATOID ARTHRITIS
     Route: 058
     Dates: start: 20081201
  2. ARAVA [Concomitant]
     Route: 048
  3. UNSPECIFIED MEDICATION [Concomitant]

REACTIONS (2)
  - VAGINAL ODOUR [None]
  - VULVOVAGINAL PRURITUS [None]
